FAERS Safety Report 6274907-7 (Version None)
Quarter: 2009Q3

REPORT INFORMATION
  Report Type: 
  Country: None (occurrence: None)
  Receive Date: 20090721
  Receipt Date: 20070702
  Transmission Date: 20100115
  Serious: Yes (Other)
  Sender: FDA-Public Use
  Company Number: US-ASTRAZENECA-2006UW26559

PATIENT
  Age: 15380 Day
  Sex: Female
  Weight: 79.4 kg

DRUGS (36)
  1. SEROQUEL [Suspect]
     Indication: SCHIZOPHRENIA
     Route: 048
     Dates: start: 19990101
  2. SEROQUEL [Suspect]
     Indication: DEPRESSION
     Route: 048
     Dates: start: 19990101
  3. SEROQUEL [Suspect]
     Indication: HALLUCINATION, AUDITORY
     Route: 048
     Dates: start: 19990101
  4. SEROQUEL [Suspect]
     Indication: DELUSION
     Route: 048
     Dates: start: 19990101
  5. SEROQUEL [Suspect]
     Route: 048
     Dates: start: 20040101, end: 20051101
  6. SEROQUEL [Suspect]
     Route: 048
     Dates: start: 20040101, end: 20051101
  7. SEROQUEL [Suspect]
     Route: 048
     Dates: start: 20040101, end: 20051101
  8. SEROQUEL [Suspect]
     Route: 048
     Dates: start: 20040101, end: 20051101
  9. SEROQUEL [Suspect]
     Dosage: 50-500 MG
     Route: 048
     Dates: start: 19990918
  10. SEROQUEL [Suspect]
     Dosage: 50-500 MG
     Route: 048
     Dates: start: 19990918
  11. SEROQUEL [Suspect]
     Dosage: 50-500 MG
     Route: 048
     Dates: start: 19990918
  12. SEROQUEL [Suspect]
     Dosage: 50-500 MG
     Route: 048
     Dates: start: 19990918
  13. GEODON [Concomitant]
  14. GEODON [Concomitant]
     Dosage: 60-160 MG
     Dates: start: 20050912
  15. RISPERDAL [Concomitant]
     Dates: start: 20070101
  16. RISPERDAL [Concomitant]
     Route: 048
     Dates: start: 19990918
  17. THORAZINE [Concomitant]
  18. VASOTEC [Concomitant]
     Dosage: 10-40 MG
     Route: 048
     Dates: start: 20000809
  19. CATAPRES [Concomitant]
     Dosage: 0.1-0.3 MG
     Route: 048
     Dates: start: 20020507
  20. ZOCOR [Concomitant]
     Route: 048
     Dates: start: 20060223
  21. THIAMINE HCL [Concomitant]
     Dates: start: 20060223
  22. FOLIC ACID [Concomitant]
     Route: 048
     Dates: start: 20060223
  23. GLYBURIDE [Concomitant]
     Route: 048
     Dates: start: 20060223
  24. ZOLOFT [Concomitant]
     Dosage: 50-100 MG
     Dates: start: 20000730
  25. DESYREL [Concomitant]
     Dosage: 100-200 MG
     Route: 048
     Dates: start: 20000730
  26. ATIVAN [Concomitant]
     Dosage: 1-2 MG
     Route: 048
     Dates: start: 20020507
  27. MAXZIDE [Concomitant]
     Route: 048
     Dates: start: 20020507
  28. PROZAC [Concomitant]
     Dosage: 10-30 MG
     Route: 048
     Dates: start: 20000809
  29. GLUCOPHAGE [Concomitant]
     Dosage: 500-1700 MG
     Route: 048
     Dates: start: 20040301, end: 20060223
  30. HYDROCORTISONE [Concomitant]
     Indication: RASH
     Dates: start: 20050912
  31. DEPAKOTE [Concomitant]
     Route: 048
     Dates: start: 19990918
  32. PSEUDOEPHEDRINE HCL [Concomitant]
     Dates: start: 19990927
  33. ZYPREXA [Concomitant]
     Route: 048
     Dates: start: 20000809
  34. ASPIRIN [Concomitant]
     Dosage: 5 GR (325 MG)
     Route: 048
     Dates: start: 20000907
  35. HUMULIN 70/30 [Concomitant]
     Dosage: 10-30 UNITS
     Route: 058
     Dates: start: 20000927
  36. MELLARIL [Concomitant]
     Dates: start: 20000730

REACTIONS (5)
  - DIABETES MELLITUS [None]
  - DIABETES MELLITUS INADEQUATE CONTROL [None]
  - DIABETIC NEPHROPATHY [None]
  - TYPE 2 DIABETES MELLITUS [None]
  - WEIGHT INCREASED [None]
